FAERS Safety Report 23674466 (Version 1)
Quarter: 2024Q1

REPORT INFORMATION
  Report Type: Spontaneous
  Country: GB (occurrence: GB)
  Receive Date: 20240326
  Receipt Date: 20240326
  Transmission Date: 20240409
  Serious: Yes (Other)
  Sender: FDA-Public Use
  Company Number: None

PATIENT
  Age: 36 Year
  Sex: Female
  Weight: 96 kg

DRUGS (7)
  1. DOXYCYCLINE [Suspect]
     Active Substance: DOXYCYCLINE
     Indication: Product used for unknown indication
     Dosage: 100 MILLIGRAM (TAKE TWO NOW THEN ONE DAILY FOR 4 DAYS TO TREAT...)
     Route: 065
     Dates: start: 20240318
  2. CLARITHROMYCIN [Concomitant]
     Active Substance: CLARITHROMYCIN
     Dosage: 1 DOSAGE FORM, BID (TAKE ONE TABLET TWICE A DAY FOR 5 DAYS, TO TREA...)
     Route: 065
     Dates: start: 20240319
  3. FLUOXETINE [Concomitant]
     Active Substance: FLUOXETINE HYDROCHLORIDE
     Dosage: 1 DOSAGE FORM, QD
     Route: 065
     Dates: start: 20231109, end: 20240318
  4. NICOTINE [Concomitant]
     Active Substance: NICOTINE
     Dosage: UNK (MAXIMUM DAILY USE IS 6 CARTRIDGES)
     Route: 065
     Dates: start: 20240214, end: 20240228
  5. NICOTINELL [Concomitant]
     Active Substance: NICOTINE
     Dosage: 1 DOSAGE FORM, QD (APPLY ONE PATCH DAILY.)
     Route: 065
     Dates: start: 20240227
  6. ALBUTEROL [Concomitant]
     Active Substance: ALBUTEROL
     Dosage: 2 DOSAGE FORM (INHALE 2 DOSES AS NEEDED)
     Route: 055
     Dates: start: 20240126
  7. SOPROBEC [Concomitant]
     Dosage: 2 DOSAGE FORM, BID
     Route: 055
     Dates: start: 20240206

REACTIONS (1)
  - Peripheral swelling [Recovering/Resolving]
